FAERS Safety Report 9840078 (Version 1)
Quarter: 2014Q1

REPORT INFORMATION
  Report Type: Spontaneous
  Country: US (occurrence: None)
  Receive Date: 20140117
  Receipt Date: 20140117
  Transmission Date: 20141002
  Serious: Yes (Death)
  Sender: FDA-Public Use
  Company Number: None

PATIENT
  Age: 88 Year
  Sex: Male

DRUGS (1)
  1. ZELBORAF [Suspect]
     Indication: METASTATIC MALIGNANT MELANOMA
     Dosage: 240MG TABHLETS; 2 OR 3 BID ORAL
     Route: 048
     Dates: start: 20120814, end: 20131213

REACTIONS (2)
  - Metastatic malignant melanoma [None]
  - Malignant neoplasm progression [None]
